FAERS Safety Report 9693348 (Version 2)
Quarter: 2013Q4

REPORT INFORMATION
  Report Type: Spontaneous
  Country: US (occurrence: None)
  Receive Date: 20131114
  Receipt Date: 20131115
  Transmission Date: 20140711
  Serious: Yes (Hospitalization)
  Sender: FDA-Public Use
  Company Number: 2013-003435

PATIENT
  Age: 28 Year
  Sex: Female

DRUGS (3)
  1. LOESTRIN 24 FE [Suspect]
     Dosage: UNKNOWN, ORAL
     Route: 048
     Dates: start: 2012, end: 2013
  2. AMOXICILLIN (AMOXICILLIN) [Concomitant]
  3. XANAX (ALPRAZOLAM) [Concomitant]

REACTIONS (3)
  - Gastrointestinal haemorrhage [None]
  - Gastric ulcer [None]
  - Gastrointestinal inflammation [None]
